FAERS Safety Report 14658865 (Version 2)
Quarter: 2019Q2

REPORT INFORMATION
  Report Type: Spontaneous
  Country: US (occurrence: US)
  Receive Date: 20180320
  Receipt Date: 20190503
  Transmission Date: 20190711
  Serious: No
  Sender: FDA-Public Use
  Company Number: US-PFIZER INC-2018114595

PATIENT
  Age: 70 Year
  Sex: Male
  Weight: 79.38 kg

DRUGS (1)
  1. SUTENT [Suspect]
     Active Substance: SUNITINIB MALATE
     Indication: RENAL CANCER
     Dosage: 10 MG, 2X/DAY
     Dates: start: 2015, end: 2015

REACTIONS (3)
  - Weight decreased [Unknown]
  - Feeding disorder [Unknown]
  - Malaise [Unknown]

NARRATIVE: CASE EVENT DATE: 2015
